FAERS Safety Report 6223237-8 (Version None)
Quarter: 2009Q2

REPORT INFORMATION
  Report Type: 
  Country: None (occurrence: None)
  Receive Date: 20090611
  Receipt Date: 20090602
  Transmission Date: 20091009
  Serious: Yes (Hospitalization)
  Sender: FDA-Public Use
  Company Number: FR-AVENTIS-200912029FR

PATIENT
  Age: 43 Year
  Sex: Male

DRUGS (10)
  1. LANTUS [Suspect]
     Route: 058
  2. DAONIL [Suspect]
     Route: 048
  3. ISOMERIDE [Suspect]
     Indication: DRUG USE FOR UNKNOWN INDICATION
     Route: 048
     Dates: start: 19950101, end: 19950101
  4. MEDIATOR [Suspect]
     Indication: DRUG USE FOR UNKNOWN INDICATION
     Route: 048
     Dates: start: 20020101, end: 20030101
  5. PARACETAMOL [Suspect]
     Indication: DRUG USE FOR UNKNOWN INDICATION
  6. ARIXTRA [Suspect]
     Indication: DRUG USE FOR UNKNOWN INDICATION
     Route: 058
  7. EFFEXOR [Suspect]
     Indication: DRUG USE FOR UNKNOWN INDICATION
     Route: 048
  8. COAPROVEL [Suspect]
     Indication: DRUG USE FOR UNKNOWN INDICATION
     Route: 048
  9. TAHOR [Suspect]
     Indication: DRUG USE FOR UNKNOWN INDICATION
     Route: 048
  10. ACUPAN [Suspect]
     Indication: DRUG USE FOR UNKNOWN INDICATION

REACTIONS (1)
  - PULMONARY ARTERIAL HYPERTENSION [None]
